FAERS Safety Report 6955411-7 (Version None)
Quarter: 2010Q3

REPORT INFORMATION
  Report Type: 
  Country: None (occurrence: None)
  Receive Date: 20100830
  Receipt Date: 20100819
  Transmission Date: 20110219
  Serious: Yes (Hospitalization, Other)
  Sender: FDA-Public Use
  Company Number: US-AMGEN-QUU430317

PATIENT
  Sex: Female
  Weight: 47.7 kg

DRUGS (3)
  1. NEULASTA [Suspect]
     Indication: CHEMOTHERAPY
     Route: 058
     Dates: start: 20100702
  2. ADRIAMYCIN PFS [Concomitant]
     Indication: BREAST CANCER
     Route: 042
     Dates: start: 20100701
  3. CYTOXAN [Concomitant]
     Indication: BREAST CANCER
     Route: 042
     Dates: start: 20100701

REACTIONS (2)
  - FEBRILE NEUTROPENIA [None]
  - NEUTROPENIA [None]
